FAERS Safety Report 9336343 (Version 1)
Quarter: 2013Q2

REPORT INFORMATION
  Report Type: Report from Study
  Country: DZ (occurrence: DZ)
  Receive Date: 20130607
  Receipt Date: 20130607
  Transmission Date: 20140414
  Serious: Yes (Other)
  Sender: FDA-Public Use
  Company Number: DZ-ROCHE-1233689

PATIENT
  Age: 47 Year
  Sex: Female

DRUGS (5)
  1. HERCEPTIN [Suspect]
     Indication: BREAST CANCER
     Route: 042
     Dates: start: 20101201, end: 20110824
  2. NAVELBINE [Suspect]
     Indication: BREAST CANCER
     Route: 065
     Dates: start: 20120422, end: 20120628
  3. TAXOTERE [Suspect]
     Indication: BREAST CANCER
     Route: 065
     Dates: start: 20121122
  4. LAPATINIB [Suspect]
     Indication: BREAST CANCER
     Route: 065
     Dates: start: 20110920, end: 20120628
  5. ZOMETA [Suspect]
     Indication: BREAST CANCER
     Route: 065
     Dates: start: 20110920, end: 20120301

REACTIONS (2)
  - Femoral neck fracture [Unknown]
  - Disease progression [Not Recovered/Not Resolved]
